FAERS Safety Report 9788365 (Version 1)
Quarter: 2013Q4

REPORT INFORMATION
  Report Type: Spontaneous
  Country: GB (occurrence: GB)
  Receive Date: 20131230
  Receipt Date: 20131230
  Transmission Date: 20140711
  Serious: Yes (Other)
  Sender: FDA-Public Use
  Company Number: PHFR2013GB007321

PATIENT
  Sex: 0

DRUGS (3)
  1. LETROZOLE [Suspect]
     Dosage: UNK UKN, UNK
     Dates: start: 201211
  2. GAVISCON                                /GFR/ [Concomitant]
     Dosage: UNK UKN, UNK
  3. CALCICHEW [Concomitant]
     Dosage: UNK UKN, UNK

REACTIONS (3)
  - Psychosomatic disease [Unknown]
  - Dysphagia [Unknown]
  - Anxiety [Unknown]
